FAERS Safety Report 8460572-7 (Version None)
Quarter: 2012Q2

REPORT INFORMATION
  Report Type: 
  Country: None (occurrence: None)
  Receive Date: 20120622
  Receipt Date: 20120411
  Transmission Date: 20120825
  Serious: No
  Sender: FDA-Public Use
  Company Number: US-ASTRAZENECA-2012SE23948

PATIENT
  Age: 79 Year
  Sex: Female

DRUGS (2)
  1. ASPIRIN [Concomitant]
  2. BRILINTA [Suspect]
     Route: 048
     Dates: start: 20120220

REACTIONS (1)
  - VENOUS INSUFFICIENCY [None]
